FAERS Safety Report 5630374-5 (Version None)
Quarter: 2008Q1

REPORT INFORMATION
  Report Type: 
  Country: None (occurrence: None)
  Receive Date: 20080219
  Receipt Date: 20080215
  Transmission Date: 20080703
  Serious: Yes (Other)
  Sender: FDA-Public Use
  Company Number: PHNU2008DE00852

PATIENT
  Sex: Male

DRUGS (5)
  1. LORZAAR [Concomitant]
  2. CARMEN [Concomitant]
  3. PLAVIX [Concomitant]
  4. SORTIS [Concomitant]
  5. LAMISIL [Suspect]
     Indication: ONYCHOMYCOSIS
     Dosage: 250MG/DAY
     Route: 048
     Dates: start: 20080101

REACTIONS (1)
  - BLOOD PRESSURE INCREASED [None]
